FAERS Safety Report 9464241 (Version 4)
Quarter: 2013Q4

REPORT INFORMATION
  Report Type: Spontaneous
  Country: DE (occurrence: DE)
  Receive Date: 20130819
  Receipt Date: 20131010
  Transmission Date: 20140711
  Serious: Yes (Hospitalization, Other)
  Sender: FDA-Public Use
  Company Number: DE-PFIZER INC-2013200962

PATIENT
  Age: 33 Year
  Sex: Female
  Weight: 58 kg

DRUGS (9)
  1. INSPRA [Suspect]
     Indication: CONGESTIVE CARDIOMYOPATHY
     Dosage: 25 MG, DAILY
     Route: 048
     Dates: start: 2009, end: 20130704
  2. INSPRA [Suspect]
     Indication: CARDIAC FAILURE
  3. CARVEDILOL [Suspect]
     Indication: CONGESTIVE CARDIOMYOPATHY
     Dosage: 6.25 MG, 2X/DAY
     Route: 048
     Dates: start: 2009
  4. CARVEDILOL [Suspect]
     Indication: CARDIAC FAILURE
  5. ENALAPRIL MALEATE [Suspect]
     Indication: CONGESTIVE CARDIOMYOPATHY
     Dosage: 10 MG, 2X/DAY
     Route: 048
     Dates: start: 2009, end: 20130704
  6. ENALAPRIL MALEATE [Suspect]
     Indication: CARDIAC FAILURE
  7. MARCUMAR [Suspect]
     Indication: CONGESTIVE CARDIOMYOPATHY
     Dosage: UNK
     Route: 048
     Dates: start: 2009, end: 20130704
  8. MARCUMAR [Suspect]
     Indication: CARDIAC FAILURE
  9. CLEXANE [Concomitant]
     Dosage: UNK
     Dates: start: 20130704

REACTIONS (1)
  - Abortion spontaneous [Unknown]
